FAERS Safety Report 9279956 (Version 2)
Quarter: 2013Q2

REPORT INFORMATION
  Report Type: Report from Study
  Country: US (occurrence: US)
  Receive Date: 20130509
  Receipt Date: 20130605
  Transmission Date: 20140414
  Serious: Yes (Death)
  Sender: FDA-Public Use
  Company Number: US-ROCHE-1196252

PATIENT
  Age: 67 Year
  Sex: Female
  Weight: 34.91 kg

DRUGS (4)
  1. AVASTIN [Suspect]
     Indication: COLORECTAL CANCER METASTATIC
     Route: 042
     Dates: start: 20130101
  2. AVASTIN [Suspect]
     Route: 042
     Dates: start: 20130131, end: 20130426
  3. AVASTIN [Suspect]
     Route: 042
     Dates: start: 20130120
  4. 5-FU [Concomitant]
     Indication: COLORECTAL CANCER METASTATIC
     Route: 042
     Dates: start: 20130131

REACTIONS (6)
  - Colon neoplasm [Fatal]
  - Nasal ulcer [Recovered/Resolved]
  - Vomiting [Not Recovered/Not Resolved]
  - Pain [Not Recovered/Not Resolved]
  - Neoplasm [Not Recovered/Not Resolved]
  - Neoplasm [Unknown]
